FAERS Safety Report 5083799-3 (Version None)
Quarter: 2006Q3

REPORT INFORMATION
  Report Type: 
  Country: None (occurrence: None)
  Receive Date: 20060818
  Receipt Date: 20060809
  Transmission Date: 20061208
  Serious: Yes (Hospitalization)
  Sender: FDA-Public Use
  Company Number: US-ABBOTT-06P-163-0339932-00

PATIENT
  Sex: Male

DRUGS (2)
  1. RITONAVIR [Suspect]
     Indication: HIV INFECTION
     Route: 048
  2. APTIVUS [Suspect]
     Indication: HIV INFECTION
     Route: 048

REACTIONS (1)
  - CENTRAL NERVOUS SYSTEM LYMPHOMA [None]
